FAERS Safety Report 18077144 (Version 1)
Quarter: 2020Q3

REPORT INFORMATION
  Report Type: Spontaneous
  Country: ES (occurrence: ES)
  Receive Date: 20200728
  Receipt Date: 20200728
  Transmission Date: 20201103
  Serious: Yes (Other)
  Sender: FDA-Public Use
  Company Number: ES-LUPIN PHARMACEUTICALS INC.-2020-03923

PATIENT
  Age: 53 Year
  Sex: Male

DRUGS (9)
  1. AZITHROMYCIN ANHYDROUS. [Interacting]
     Active Substance: AZITHROMYCIN ANHYDROUS
     Indication: COVID-19 PNEUMONIA
     Dosage: 250 MILLIGRAM, QD (EVERY 24 HOUR)
     Route: 065
  2. PAROXETINE. [Interacting]
     Active Substance: PAROXETINE
     Indication: PSYCHOTIC DISORDER
     Dosage: 10 MILLIGRAM, QD (EVERY 24 HOUR)
     Route: 065
  3. HYDROXYCHLOROQUINE [Suspect]
     Active Substance: HYDROXYCHLOROQUINE
     Indication: COVID-19 PNEUMONIA
     Dosage: 400 MILLIGRAM, QD (EVERY 24 HOUR)
     Route: 065
  4. LOPINAVIR + RITONAVIR [Interacting]
     Active Substance: LOPINAVIR\RITONAVIR
     Indication: COVID-19 PNEUMONIA
     Dosage: 400/100 MG, BID (EVERY 12 HOUR)
     Route: 065
  5. RISPERIDONE. [Interacting]
     Active Substance: RISPERIDONE
     Indication: PSYCHOTIC DISORDER
     Dosage: 3 MILLIGRAM, QD (EVERY 24 HOUR)
     Route: 065
  6. PAROXETINE. [Interacting]
     Active Substance: PAROXETINE
     Indication: INTELLECTUAL DISABILITY
     Dosage: 20 MILLIGRAM, QD (EVERY 24 HOUR)
     Route: 065
  7. RISPERIDONE. [Interacting]
     Active Substance: RISPERIDONE
     Indication: INTELLECTUAL DISABILITY
     Dosage: 4, 5 MG, QD
     Route: 065
  8. TOPIRAMATE. [Interacting]
     Active Substance: TOPIRAMATE
     Indication: INTELLECTUAL DISABILITY
     Dosage: 150 MILLIGRAM, QD (EVERY 24 HOUR)
     Route: 065
  9. TOPIRAMATE. [Interacting]
     Active Substance: TOPIRAMATE
     Indication: PSYCHOTIC DISORDER

REACTIONS (1)
  - Off label use [Unknown]
